FAERS Safety Report 16763589 (Version 1)
Quarter: 2019Q3

REPORT INFORMATION
  Report Type: Spontaneous
  Country: US (occurrence: US)
  Receive Date: 20190902
  Receipt Date: 20190902
  Transmission Date: 20191005
  Serious: Yes (Other)
  Sender: FDA-Public Use
  Company Number: US-PFIZER INC-2019370737

PATIENT
  Age: 66 Year
  Sex: Female
  Weight: 60.78 kg

DRUGS (5)
  1. CHANTIX [Suspect]
     Active Substance: VARENICLINE TARTRATE
     Indication: SMOKING CESSATION THERAPY
     Dosage: TAKING 1/2 TABLET, A DAY
     Route: 048
  2. NICODERM CQ [Concomitant]
     Active Substance: NICOTINE
     Dosage: UNK
  3. CHANTIX [Suspect]
     Active Substance: VARENICLINE TARTRATE
     Dosage: 1 MG, 2X/DAY
     Route: 048
     Dates: start: 201609
  4. KEYTRUDA [Concomitant]
     Active Substance: PEMBROLIZUMAB
     Dosage: UNK
  5. CHANTIX [Suspect]
     Active Substance: VARENICLINE TARTRATE
     Dosage: 1 TABLET A DAY
     Route: 048

REACTIONS (7)
  - Off label use [Unknown]
  - Anxiety [Unknown]
  - Metastases to lymph nodes [Recovering/Resolving]
  - Brain neoplasm [Recovering/Resolving]
  - Lung carcinoma cell type unspecified stage IV [Not Recovered/Not Resolved]
  - Metastases to abdominal cavity [Recovering/Resolving]
  - Metastases to liver [Recovering/Resolving]

NARRATIVE: CASE EVENT DATE: 201810
